FAERS Safety Report 8602230-1 (Version None)
Quarter: 2012Q3

REPORT INFORMATION
  Report Type: 
  Country: None (occurrence: None)
  Receive Date: 20120817
  Receipt Date: 20120813
  Transmission Date: 20120928
  Serious: Yes (Other)
  Sender: FDA-Public Use
  Company Number: US-PFIZER INC-2012197824

PATIENT
  Age: 63 Year
  Sex: Female
  Weight: 71 kg

DRUGS (12)
  1. HYDROCODONE [Concomitant]
     Dosage: UNK
  2. VITAMIN B-12 [Concomitant]
     Indication: VITAMIN B12 DEFICIENCY
     Dosage: UNK, 2X/MONTH
  3. GABAPENTIN [Suspect]
     Indication: NEUROPATHY PERIPHERAL
  4. GABAPENTIN [Suspect]
     Indication: PAIN IN EXTREMITY
     Dosage: 1500 MG, 1X/DAY (2X300 MORNING, 1X300 AFTEROON, 2X300NIGHT
     Route: 048
     Dates: start: 20111201
  5. GABAPENTIN [Suspect]
     Indication: MUSCULOSKELETAL DISORDER
     Dosage: UNK
     Route: 048
  6. ISOSORBIDE DINITRATE [Concomitant]
     Indication: CARDIAC FAILURE CONGESTIVE
     Dosage: UNK
  7. TRAMADOL [Concomitant]
     Dosage: UNK
  8. FUROSEMIDE [Concomitant]
     Indication: CARDIAC FAILURE CONGESTIVE
     Dosage: UNK
  9. POTASSIUM [Concomitant]
     Dosage: UNK
  10. CLONAZEPAM [Concomitant]
     Indication: RESTLESS LEGS SYNDROME
     Dosage: UNK
  11. XANAX [Concomitant]
     Dosage: UNK, AS NEEDED
  12. GABAPENTIN [Suspect]

REACTIONS (7)
  - GRIP STRENGTH DECREASED [None]
  - GOUT [None]
  - DRUG INEFFECTIVE [None]
  - BLOOD URIC ACID INCREASED [None]
  - RHEUMATOID ARTHRITIS [None]
  - SINUS CONGESTION [None]
  - PARAESTHESIA [None]
